FAERS Safety Report 5624609-2 (Version None)
Quarter: 2008Q1

REPORT INFORMATION
  Report Type: 
  Country: None (occurrence: None)
  Receive Date: 20080213
  Receipt Date: 20080208
  Transmission Date: 20080703
  Serious: No
  Sender: FDA-Public Use
  Company Number: US-JNJFOC-20080202437

PATIENT
  Age: 42 Year
  Sex: Female

DRUGS (5)
  1. INVEGA [Suspect]
     Indication: BIPOLAR DISORDER
     Route: 048
  2. LAMICTAL [Concomitant]
     Indication: BIPOLAR DISORDER
     Route: 048
  3. ROZEREM [Concomitant]
     Indication: ANXIETY
     Route: 048
  4. ROZEREM [Concomitant]
     Indication: INSOMNIA
     Route: 048
  5. ATIVAN [Concomitant]
     Indication: ANXIETY
     Route: 048

REACTIONS (1)
  - MENSTRUAL DISORDER [None]
